FAERS Safety Report 4376967-7 (Version None)
Quarter: 2004Q2

REPORT INFORMATION
  Report Type: 
  Country: None (occurrence: None)
  Receive Date: 20040614
  Receipt Date: 20040603
  Transmission Date: 20050107
  Serious: Yes (Disabling)
  Sender: FDA-Public Use
  Company Number: US-MERCK-0406USA00322

PATIENT
  Age: 48 Year
  Sex: Female

DRUGS (1)
  1. FOSAMAX [Suspect]
     Indication: OSTEOPENIA
     Route: 048
     Dates: start: 20040401, end: 20040401

REACTIONS (3)
  - MEDICATION ERROR [None]
  - OESOPHAGITIS [None]
  - SELF-MEDICATION [None]
